FAERS Safety Report 5276843-1 (Version None)
Quarter: 2007Q1

REPORT INFORMATION
  Report Type: 
  Country: None (occurrence: None)
  Receive Date: 20070321
  Receipt Date: 20070306
  Transmission Date: 20070707
  Serious: Yes (Death)
  Sender: FDA-Public Use
  Company Number: 105

PATIENT
  Sex: Female

DRUGS (1)
  1. FAZACLO ODT [Suspect]
     Dosage: 300 MG PO DAILY
     Route: 048
     Dates: start: 20060828, end: 20070201

REACTIONS (1)
  - DEATH [None]
